FAERS Safety Report 6106948-4 (Version None)
Quarter: 2009Q1

REPORT INFORMATION
  Report Type: 
  Country: None (occurrence: None)
  Receive Date: 20090305
  Receipt Date: 20090305
  Transmission Date: 20090719
  Serious: Yes (Other)
  Sender: FDA-Public Use
  Company Number: None

PATIENT
  Age: 64 Year
  Sex: Female
  Weight: 47.6277 kg

DRUGS (2)
  1. MAALOX TOTAL RELIEF [Suspect]
     Indication: DYSPEPSIA
     Dosage: 1 TABLESPOON AS NEEDED ORAL
     Route: 048
     Dates: start: 20090123, end: 20090129
  2. MAALOX TOTAL RELIEF [Suspect]
     Indication: GASTROOESOPHAGEAL REFLUX DISEASE
     Dosage: 1 TABLESPOON AS NEEDED ORAL
     Route: 048
     Dates: start: 20090123, end: 20090129

REACTIONS (1)
  - FAECES DISCOLOURED [None]
